FAERS Safety Report 26024215 (Version 3)
Quarter: 2025Q4

REPORT INFORMATION
  Report Type: Spontaneous
  Country: US (occurrence: US)
  Receive Date: 20251111
  Receipt Date: 20251203
  Transmission Date: 20260117
  Serious: No
  Sender: Haleon PLC
  Company Number: US-HALEON-2273161

PATIENT
  Age: 69 Year
  Sex: Male

DRUGS (6)
  1. ADVIL [Suspect]
     Active Substance: IBUPROFEN
     Indication: Back pain
  2. ADVIL [Suspect]
     Active Substance: IBUPROFEN
     Indication: Headache
  3. ADVIL [Suspect]
     Active Substance: IBUPROFEN
     Indication: Myalgia
  4. ADVIL [Suspect]
     Active Substance: IBUPROFEN
     Indication: Arthritis
  5. ADVIL [Suspect]
     Active Substance: IBUPROFEN
     Indication: Musculoskeletal discomfort
  6. ADVIL [Suspect]
     Active Substance: IBUPROFEN
     Indication: Musculoskeletal discomfort

REACTIONS (1)
  - Drug ineffective [Unknown]
